FAERS Safety Report 15265455 (Version 10)
Quarter: 2025Q1

REPORT INFORMATION
  Report Type: Spontaneous
  Country: AT (occurrence: AT)
  Receive Date: 20180810
  Receipt Date: 20250131
  Transmission Date: 20250409
  Serious: Yes (Death, Congenital Anomaly, Other)
  Sender: JOHNSON AND JOHNSON
  Company Number: AT-JNJFOC-20180807177

PATIENT
  Age: 1 Day
  Weight: 2.1 kg

DRUGS (18)
  1. PREZISTA [Suspect]
     Active Substance: DARUNAVIR ETHANOLATE
     Indication: Product used for unknown indication
     Dosage: 1200 MILLIGRAM, QD
     Route: 064
  2. PREZISTA [Suspect]
     Active Substance: DARUNAVIR ETHANOLATE
     Dosage: 1200 MILLIGRAM, QD
     Route: 064
  3. ISENTRESS [Suspect]
     Active Substance: RALTEGRAVIR POTASSIUM
     Indication: Product used for unknown indication
     Dosage: 800 MILLIGRAM, QD
     Route: 064
  4. ISENTRESS [Suspect]
     Active Substance: RALTEGRAVIR POTASSIUM
     Dosage: 800 MILLIGRAM, QD
     Route: 064
  5. LAMIVUDINE\ZIDOVUDINE [Suspect]
     Active Substance: LAMIVUDINE\ZIDOVUDINE
     Indication: Product used for unknown indication
     Route: 064
  6. LAMIVUDINE\ZIDOVUDINE [Suspect]
     Active Substance: LAMIVUDINE\ZIDOVUDINE
     Route: 064
  7. ZIDOVUDINE [Suspect]
     Active Substance: ZIDOVUDINE
     Indication: Product used for unknown indication
     Route: 064
  8. ZIDOVUDINE [Suspect]
     Active Substance: ZIDOVUDINE
     Route: 064
  9. FUZEON [Suspect]
     Active Substance: ENFUVIRTIDE
     Indication: Product used for unknown indication
     Dosage: 800 MILLIGRAM, QD
     Route: 064
  10. FUZEON [Suspect]
     Active Substance: ENFUVIRTIDE
     Dosage: 800 MILLIGRAM, QD
     Route: 064
  11. LOPINAVIR\RITONAVIR [Suspect]
     Active Substance: LOPINAVIR\RITONAVIR
     Indication: Product used for unknown indication
     Route: 064
  12. PENICILLIN V POTASSIUM [Suspect]
     Active Substance: PENICILLIN V POTASSIUM
     Indication: Product used for unknown indication
     Route: 064
  13. COMBIVIR [Suspect]
     Active Substance: LAMIVUDINE\ZIDOVUDINE
     Indication: Product used for unknown indication
     Route: 064
  14. RETROVIR [Suspect]
     Active Substance: ZIDOVUDINE
     Indication: Product used for unknown indication
     Route: 064
  15. TRUVADA [Suspect]
     Active Substance: EMTRICITABINE\TENOFOVIR DISOPROXIL FUMARATE
     Indication: Product used for unknown indication
     Route: 064
  16. RITONAVIR [Suspect]
     Active Substance: RITONAVIR
     Indication: Product used for unknown indication
     Route: 064
  17. PHENETHICILLIN POTASSIUM [Concomitant]
     Active Substance: PHENETHICILLIN POTASSIUM
     Indication: Product used for unknown indication
     Route: 064
  18. PENICILLIN V POTASSIUM [Concomitant]
     Active Substance: PENICILLIN V POTASSIUM
     Indication: Product used for unknown indication
     Route: 064

REACTIONS (10)
  - Weaning failure [Fatal]
  - Plagiocephaly [Recovered/Resolved]
  - Heart disease congenital [Unknown]
  - Hypoplastic left heart syndrome [Unknown]
  - Atrioventricular septal defect [Unknown]
  - Pulmonary hypertension [Unknown]
  - Foetal exposure during pregnancy [Recovered/Resolved]
  - Foetal exposure during pregnancy [Recovered/Resolved]
  - Trisomy 21 [Unknown]
  - Gene mutation [Unknown]
